FAERS Safety Report 6138503-4 (Version None)
Quarter: 2009Q1

REPORT INFORMATION
  Report Type: 
  Country: None (occurrence: None)
  Receive Date: 20090327
  Receipt Date: 20090327
  Transmission Date: 20090719
  Serious: Yes (Hospitalization)
  Sender: FDA-Public Use
  Company Number: None

PATIENT
  Age: 57 Year
  Sex: Male

DRUGS (1)
  1. VARENICLINE [Suspect]
     Indication: SMOKING CESSATION THERAPY
     Dosage: 2 MG EVERYDAY PO
     Route: 048
     Dates: start: 20080515, end: 20080527

REACTIONS (3)
  - ANXIETY [None]
  - DELIRIUM [None]
  - FLIGHT OF IDEAS [None]
